FAERS Safety Report 8536344-1 (Version None)
Quarter: 2012Q3

REPORT INFORMATION
  Report Type: 
  Country: None (occurrence: None)
  Receive Date: 20120725
  Receipt Date: 20120711
  Transmission Date: 20120928
  Serious: Yes (Hospitalization)
  Sender: FDA-Public Use
  Company Number: GB-MYLANLABS-2012S1014040

PATIENT
  Sex: Male

DRUGS (3)
  1. CODEINE [Concomitant]
     Indication: PAIN
     Dates: start: 20880101
  2. ACETAMINOPHEN [Concomitant]
     Indication: PAIN
     Dates: start: 20080101
  3. AMLODIPINE [Suspect]
     Indication: HYPERTENSION
     Route: 048
     Dates: start: 20120613, end: 20120628

REACTIONS (1)
  - TESTICULAR SWELLING [None]
